FAERS Safety Report 4392565-3 (Version None)
Quarter: 2004Q3

REPORT INFORMATION
  Report Type: 
  Country: None (occurrence: None)
  Receive Date: 20040701
  Receipt Date: 20040624
  Transmission Date: 20050211
  Serious: Yes (Hospitalization)
  Sender: FDA-Public Use
  Company Number: FRWYE857028JUN04

PATIENT
  Age: 69 Year
  Sex: Female

DRUGS (7)
  1. EFFEXOR [Suspect]
     Indication: DEPRESSION
     Dosage: 50 MG 4X PER 1 DAY ORAL
     Route: 048
     Dates: start: 20040501, end: 20040601
  2. EFFEXOR [Suspect]
     Indication: PERSONALITY DISORDER
     Dosage: 50 MG 4X PER 1 DAY ORAL
     Route: 048
     Dates: start: 20040501, end: 20040601
  3. EFFEXOR XR [Suspect]
     Indication: DEPRESSION
     Dosage: 37.5 MG 2X PER 1 DAY ORAL
     Route: 048
     Dates: start: 20040501, end: 20040501
  4. EFFEXOR XR [Suspect]
     Indication: PERSONALITY DISORDER
     Dosage: 37.5 MG 2X PER 1 DAY ORAL
     Route: 048
     Dates: start: 20040501, end: 20040501
  5. LEVOTHYROXINE SODIUM [Concomitant]
  6. STILNOX (ZOLPIDEM) [Concomitant]
  7. XANAX [Concomitant]

REACTIONS (4)
  - CONDITION AGGRAVATED [None]
  - GAMMA-GLUTAMYLTRANSFERASE INCREASED [None]
  - HEPATIC ENZYME INCREASED [None]
  - TRANSAMINASES INCREASED [None]
